FAERS Safety Report 11832507 (Version 1)
Quarter: 2015Q4

REPORT INFORMATION
  Report Type: Spontaneous
  Country: US (occurrence: US)
  Receive Date: 20151214
  Receipt Date: 20151214
  Transmission Date: 20160305
  Serious: Yes (Other)
  Sender: FDA-Public Use
  Company Number: US-PFIZER INC-2015439163

PATIENT
  Age: 54 Year
  Sex: Male
  Weight: 131.54 kg

DRUGS (6)
  1. DOXYCYCLINE HYCLATE. [Suspect]
     Active Substance: DOXYCYCLINE HYCLATE
     Dosage: ONE 100MG TABLET THE MORNING
     Route: 048
     Dates: start: 20151205, end: 20151205
  2. ATIVAN [Concomitant]
     Active Substance: LORAZEPAM
     Indication: ANXIETY
     Dosage: 200MG ONE HALF A TABLET EVERY EIGHT HOURS
     Route: 048
     Dates: start: 2015
  3. FIORICET [Concomitant]
     Active Substance: ACETAMINOPHEN\BUTALBITAL\CAFFEINE
     Indication: HEADACHE
     Dosage: BUTALBITAL 50MG/PARACETAMOL 300MG/CAFFEINE 50MG, ONE TABLET EVERY 4 HOURS AS NEEDED
     Route: 048
     Dates: start: 201509
  4. DOXYCYCLINE HYCLATE. [Suspect]
     Active Substance: DOXYCYCLINE HYCLATE
     Indication: LYME DISEASE
     Dosage: TWO 100MG TABLETS THE EVENING
     Route: 048
     Dates: start: 20151204, end: 20151204
  5. PROTONIX [Concomitant]
     Active Substance: PANTOPRAZOLE SODIUM
     Indication: ABDOMINAL DISCOMFORT
     Dosage: 40MG ONE TABLET DAILY OR ONE MORE AS NEEDED
     Route: 048
     Dates: start: 2014
  6. CLONIDINE. [Concomitant]
     Active Substance: CLONIDINE
     Indication: ANXIETY
     Dosage: 0.01MG ONE TABLET TWICE A DAY
     Route: 048
     Dates: start: 2014

REACTIONS (4)
  - Headache [Not Recovered/Not Resolved]
  - Hypertension [Not Recovered/Not Resolved]
  - Intracranial pressure increased [Unknown]
  - Lethargy [Not Recovered/Not Resolved]

NARRATIVE: CASE EVENT DATE: 20151205
